FAERS Safety Report 8260766 (Version 15)
Quarter: 2022Q2

REPORT INFORMATION
  Report Type: Spontaneous
  Country: FR (occurrence: FR)
  Receive Date: 20111123
  Receipt Date: 20220512
  Transmission Date: 20220721
  Serious: Yes (Death, Congenital Anomaly, Other)
  Sender: FDA-Public Use
  Company Number: FR-BRISTOL-MYERS SQUIBB COMPANY-15921299

PATIENT
  Sex: Female

DRUGS (11)
  1. VIDEX [Suspect]
     Active Substance: DIDANOSINE
     Indication: Product used for unknown indication
     Dosage: UNK
     Route: 064
     Dates: start: 20050523, end: 20050908
  2. SUSTIVA [Suspect]
     Active Substance: EFAVIRENZ
     Indication: Product used for unknown indication
     Dosage: 600 MILLIGRAM, QD
     Route: 064
     Dates: start: 20050523, end: 20050908
  3. KALETRA [Suspect]
     Active Substance: LOPINAVIR\RITONAVIR
     Indication: Product used for unknown indication
     Dosage: (MOTHER DOSE :UNK)
     Route: 064
     Dates: start: 20050908
  4. LOPINAVIR\RITONAVIR [Suspect]
     Active Substance: LOPINAVIR\RITONAVIR
     Indication: Product used for unknown indication
     Route: 064
  5. LOPINAVIR\RITONAVIR [Suspect]
     Active Substance: LOPINAVIR\RITONAVIR
     Dosage: UNK (MOTHER DOSE)
     Route: 064
     Dates: start: 20050908
  6. EMTRIVA [Suspect]
     Active Substance: EMTRICITABINE
     Indication: Product used for unknown indication
     Dosage: (MOTHER DOSE : 200 MG, QD)
     Route: 064
     Dates: start: 20050523, end: 20050908
  7. NEVIRAPINE [Suspect]
     Active Substance: NEVIRAPINE
     Indication: Product used for unknown indication
     Route: 064
     Dates: start: 20050704
  8. COMBIVIR [Suspect]
     Active Substance: LAMIVUDINE\ZIDOVUDINE
     Indication: Product used for unknown indication
     Route: 064
  9. COMBIVIR [Suspect]
     Active Substance: LAMIVUDINE\ZIDOVUDINE
     Route: 064
     Dates: start: 20050908
  10. VIRAMUNE [Suspect]
     Active Substance: NEVIRAPINE
     Indication: Product used for unknown indication
     Dosage: 400 MILLIGRAM, QD
     Route: 064
     Dates: start: 20050620
  11. VIRAMUNE [Suspect]
     Active Substance: NEVIRAPINE
     Dosage: 400 MILLIGRAM, QD
     Route: 064
     Dates: start: 20050704

REACTIONS (9)
  - Anencephaly [Unknown]
  - Neural tube defect [Unknown]
  - Congenital hydrocephalus [Unknown]
  - Spinocerebellar disorder [Fatal]
  - Foetal exposure during pregnancy [Unknown]
  - Encephalocele [Unknown]
  - Meningomyelocele [Unknown]
  - Spina bifida [Fatal]
  - Brain herniation [Fatal]

NARRATIVE: CASE EVENT DATE: 20060101
